FAERS Safety Report 6266333-1 (Version None)
Quarter: 2009Q3

REPORT INFORMATION
  Report Type: 
  Country: None (occurrence: None)
  Receive Date: 20090713
  Receipt Date: 20090706
  Transmission Date: 20100115
  Serious: No
  Sender: FDA-Public Use
  Company Number: FR-EISAI INC.-E2090-00764-SPO-FR

PATIENT
  Age: 63 Year
  Sex: Male

DRUGS (8)
  1. ZONEGRAN [Suspect]
     Indication: EPILEPSY
     Dosage: TITRATED UP TO 200 MG
     Route: 048
     Dates: start: 20081110, end: 20090208
  2. ZONEGRAN [Suspect]
     Route: 048
     Dates: start: 20090209, end: 20090528
  3. ZONEGRAN [Suspect]
     Route: 048
     Dates: start: 20090529, end: 20090609
  4. TARKA [Suspect]
     Dosage: UNKNOWN
     Route: 048
  5. KEPPRA [Concomitant]
     Indication: EPILEPSY
     Route: 048
     Dates: start: 20081110
  6. KEPPRA [Concomitant]
     Route: 048
  7. ATARAX [Concomitant]
     Route: 048
  8. TRILEPTAL [Concomitant]
     Dates: end: 20081110

REACTIONS (1)
  - ERYTHEMA MULTIFORME [None]
